FAERS Safety Report 10698239 (Version 1)
Quarter: 2014Q3

REPORT INFORMATION
  Report Type: Other
  Country: IT (occurrence: IT)
  Receive Date: 20140919
  Receipt Date: 20140919
  Transmission Date: 20150326
  Serious: Yes (Other)
  Sender: FDA-Public Use
  Company Number: IT-APOTEX-2014AP003565

PATIENT

DRUGS (4)
  1. CLARITHROMYCIN. [Suspect]
     Active Substance: CLARITHROMYCIN
     Indication: INTENTIONAL SELF-INJURY
  2. LOPERAMIDE [Suspect]
     Active Substance: LOPERAMIDE
     Indication: INTENTIONAL SELF-INJURY
  3. LOPERAMIDE [Suspect]
     Active Substance: LOPERAMIDE
     Indication: DRUG ABUSE
     Dosage: 8 DF, UNK
     Route: 048
     Dates: start: 20140219, end: 20140219
  4. CLARITHROMYCIN. [Suspect]
     Active Substance: CLARITHROMYCIN
     Indication: DRUG ABUSE
     Dosage: 500 MG, UNK
     Route: 048
     Dates: start: 20140219, end: 20140219

REACTIONS (5)
  - Abdominal pain [Recovered/Resolved]
  - Intentional self-injury [Recovered/Resolved]
  - Vomiting [Recovered/Resolved]
  - Toxicity to various agents [Recovered/Resolved]
  - Drug abuse [Recovered/Resolved]

NARRATIVE: CASE EVENT DATE: 20140219
